FAERS Safety Report 6724486-2 (Version None)
Quarter: 2010Q2

REPORT INFORMATION
  Report Type: 
  Country: None (occurrence: None)
  Receive Date: 20100513
  Receipt Date: 20100507
  Transmission Date: 20101027
  Serious: Yes (Death, Hospitalization)
  Sender: FDA-Public Use
  Company Number: IN-ELI_LILLY_AND_COMPANY-IN201005000691

PATIENT
  Age: 72 Year
  Sex: Female

DRUGS (2)
  1. XIGRIS [Suspect]
     Indication: SEPTIC SHOCK
     Dosage: UNK, UNKNOWN
     Route: 065
     Dates: start: 20100430, end: 20100502
  2. XIGRIS [Suspect]
     Dosage: UNK, UNKNOWN
     Route: 065
     Dates: start: 20100502, end: 20100504

REACTIONS (3)
  - COMA SCALE ABNORMAL [None]
  - DISEASE PROGRESSION [None]
  - DRUG INEFFECTIVE [None]
